FAERS Safety Report 4584592-8 (Version None)
Quarter: 2005Q1

REPORT INFORMATION
  Report Type: 
  Country: None (occurrence: None)
  Receive Date: 20050125
  Receipt Date: 20040929
  Transmission Date: 20050727
  Serious: No
  Sender: FDA-Public Use
  Company Number: USA040465293

PATIENT
  Age: 77 Year
  Sex: Female

DRUGS (8)
  1. FORTEO [Suspect]
     Indication: OSTEOPOROSIS
     Dates: start: 20030601
  2. FOLIC ACID [Concomitant]
  3. METHOTREXATE [Concomitant]
  4. VITAMIN NOS [Concomitant]
  5. CALCIUM GLUCONATE [Concomitant]
  6. DIOVAN [Concomitant]
  7. LOTREL [Concomitant]
  8. VIOXX [Concomitant]

REACTIONS (3)
  - BACK PAIN [None]
  - INJECTION SITE ERYTHEMA [None]
  - INJECTION SITE HAEMORRHAGE [None]
